FAERS Safety Report 18769726 (Version 2)
Quarter: 2021Q2

REPORT INFORMATION
  Report Type: Spontaneous
  Country: US (occurrence: US)
  Receive Date: 20210121
  Receipt Date: 20210507
  Transmission Date: 20210717
  Serious: Yes (Hospitalization)
  Sender: FDA-Public Use
  Company Number: US-TEVA-2021-US-1869897

PATIENT
  Age: 27 Year
  Sex: Male

DRUGS (4)
  1. RITUXIMAB. [Suspect]
     Active Substance: RITUXIMAB
     Indication: ANTI-NEUTROPHIL CYTOPLASMIC ANTIBODY POSITIVE VASCULITIS
     Dosage: 4 DOSES
     Route: 042
  2. RITUXIMAB. [Suspect]
     Active Substance: RITUXIMAB
     Indication: IMMUNOSUPPRESSANT DRUG THERAPY
  3. PREDNISONE. [Suspect]
     Active Substance: PREDNISONE
     Indication: ANTI-NEUTROPHIL CYTOPLASMIC ANTIBODY POSITIVE VASCULITIS
     Dosage: 60 MILLIGRAM DAILY;
     Route: 065
  4. PREDNISONE. [Suspect]
     Active Substance: PREDNISONE
     Indication: STEROID THERAPY

REACTIONS (1)
  - Bronchopulmonary aspergillosis [Recovering/Resolving]
